FAERS Safety Report 25591992 (Version 1)
Quarter: 2025Q3

REPORT INFORMATION
  Report Type: Spontaneous
  Country: ID (occurrence: ID)
  Receive Date: 20250722
  Receipt Date: 20250722
  Transmission Date: 20251021
  Serious: Yes (Other)
  Sender: NOVARTIS
  Company Number: ID-002147023-NVSC2025ID115623

PATIENT

DRUGS (1)
  1. IMATINIB [Suspect]
     Active Substance: IMATINIB
     Indication: Product used for unknown indication
     Route: 065

REACTIONS (3)
  - Cardiotoxicity [Unknown]
  - Ejection fraction decreased [Unknown]
  - Cardiomegaly [Unknown]
